FAERS Safety Report 12627172 (Version 2)
Quarter: 2016Q3

REPORT INFORMATION
  Report Type: Spontaneous
  Country: US (occurrence: US)
  Receive Date: 20160805
  Receipt Date: 20160819
  Transmission Date: 20161109
  Serious: No
  Sender: FDA-Public Use
  Company Number: US-PFIZER INC-2016370491

PATIENT
  Age: 65 Year
  Sex: Female
  Weight: 48 kg

DRUGS (4)
  1. GABAPENTIN. [Concomitant]
     Active Substance: GABAPENTIN
     Indication: NERVE INJURY
     Dosage: 300 MG, 2X/DAY
     Dates: start: 201505
  2. XANAX [Concomitant]
     Active Substance: ALPRAZOLAM
     Dosage: UNK UNK, 3X/DAY (0.5)
  3. FLUCONAZOLE. [Suspect]
     Active Substance: FLUCONAZOLE
     Indication: FUNGAL INFECTION
     Dosage: 200 MG, 2X/DAY
     Route: 048
     Dates: start: 20160721
  4. DILAUDID [Concomitant]
     Active Substance: HYDROMORPHONE HYDROCHLORIDE
     Indication: BACK PAIN
     Dosage: 4 MG, 2X/DAY

REACTIONS (6)
  - Oxygen saturation decreased [Unknown]
  - Daydreaming [Unknown]
  - Dysarthria [Recovered/Resolved]
  - Intentional product misuse [Unknown]
  - Hallucination [Recovered/Resolved]
  - Hypoaesthesia [Unknown]

NARRATIVE: CASE EVENT DATE: 2016
